FAERS Safety Report 12801079 (Version 1)
Quarter: 2016Q4

REPORT INFORMATION
  Report Type: Spontaneous
  Country: US (occurrence: US)
  Receive Date: 20161003
  Receipt Date: 20161003
  Transmission Date: 20170207
  Serious: No
  Sender: FDA-Public Use
  Company Number: US-ACTELION-A-US2016-142953

PATIENT
  Age: 69 Year
  Sex: Male

DRUGS (2)
  1. VELETRI [Suspect]
     Active Substance: EPOPROSTENOL
     Indication: PULMONARY HYPERTENSION
     Dosage: 30.1 NG/KG, PER MIN
     Route: 042
     Dates: start: 20151118
  2. VELETRI [Suspect]
     Active Substance: EPOPROSTENOL
     Dosage: UNK
     Route: 042

REACTIONS (5)
  - Headache [Unknown]
  - Paranasal sinus discomfort [Unknown]
  - Abdominal distension [Unknown]
  - Abdominal discomfort [Unknown]
  - Nausea [Unknown]
